FAERS Safety Report 8062479-6 (Version None)
Quarter: 2012Q1

REPORT INFORMATION
  Report Type: 
  Country: None (occurrence: None)
  Receive Date: 20120123
  Receipt Date: 20120111
  Transmission Date: 20120608
  Serious: Yes (Hospitalization, Other)
  Sender: FDA-Public Use
  Company Number: US-SANOFI-AVENTIS-2012SA002536

PATIENT
  Age: 72 Year
  Sex: Male

DRUGS (5)
  1. LOVENOX [Suspect]
     Route: 058
     Dates: start: 20110101
  2. LOVENOX [Suspect]
     Route: 058
     Dates: start: 20110101
  3. AZITHROMYCIN [Concomitant]
  4. ENOXAPARIN SODIUM [Suspect]
     Route: 058
     Dates: start: 20110101
  5. ENOXAPARIN SODIUM [Suspect]
     Route: 058
     Dates: start: 20110101

REACTIONS (10)
  - VISUAL IMPAIRMENT [None]
  - OEDEMA PERIPHERAL [None]
  - ANAPHYLACTIC REACTION [None]
  - EYE HAEMORRHAGE [None]
  - DRUG INTOLERANCE [None]
  - PROMOTION OF WOUND HEALING [None]
  - DRUG INEFFECTIVE [None]
  - THROMBOSIS [None]
  - INAPPROPRIATE SCHEDULE OF DRUG ADMINISTRATION [None]
  - EYE OPERATION [None]
